FAERS Safety Report 10975126 (Version 2)
Quarter: 2016Q1

REPORT INFORMATION
  Report Type: Spontaneous
  Country: US (occurrence: US)
  Receive Date: 20150401
  Receipt Date: 20160216
  Transmission Date: 20160525
  Serious: No
  Sender: FDA-Public Use
  Company Number: US-PFIZER INC-2015107066

PATIENT
  Age: 61 Year
  Sex: Female
  Weight: 91 kg

DRUGS (28)
  1. ATENOLOL. [Concomitant]
     Active Substance: ATENOLOL
     Indication: HYPERTENSION
     Dosage: 25 MG, 1 AT BEDTIME ALTERNATE DAY
     Dates: start: 2008
  2. ALKA-SELTZER PLUS COLD [Concomitant]
     Active Substance: ACETAMINOPHEN\CHLORPHENIRAMINE MALEATE\PHENYLEPHRINE HYDROCHLORIDE
     Indication: SLEEP DISORDER
  3. PENNSAID [Concomitant]
     Active Substance: DICLOFENAC SODIUM
     Indication: PAIN
  4. HYDROCODONE BITARTRATE AND ACETAMINOPHEN [Concomitant]
     Active Substance: ACETAMINOPHEN\HYDROCODONE BITARTRATE
     Dosage: 1 DF, EVERY 4 HRS (HYDROCODONE BITARTRATE, PARACETAMOL  10-325MG)
  5. COENZYME Q10 [Concomitant]
     Active Substance: UBIDECARENONE
     Dosage: 400 MG, 1X/DAY (WITH BREAKFAST)
  6. ALKA-SELTZER PLUS COLD [Concomitant]
     Active Substance: ACETAMINOPHEN\CHLORPHENIRAMINE MALEATE\PHENYLEPHRINE HYDROCHLORIDE
     Indication: HYPERSENSITIVITY
     Dosage: UNK UNK, 1X/DAY(AT BEDTIME )
  7. THEOPHYLLINE [Concomitant]
     Active Substance: THEOPHYLLINE ANHYDROUS
     Indication: LUNG DISORDER
  8. VITAMIN D [Concomitant]
     Active Substance: CHOLECALCIFEROL
     Dosage: 5000 MG, 1X/DAY (WITH BREAKFAST)
  9. GARLIC. [Concomitant]
     Active Substance: GARLIC
     Indication: BLOOD DISORDER
  10. METFORMIN [Concomitant]
     Active Substance: METFORMIN HYDROCHLORIDE
     Indication: TYPE 2 DIABETES MELLITUS
     Dosage: 500 MG, 1X/DAY
  11. KRILL OIL [Concomitant]
     Active Substance: DIETARY SUPPLEMENT
     Dosage: 400 MG, 2X/DAY (1 WITH BREAKFAST, THE OTHER WITH SUPPER)
  12. BENFOTIAMINE [Concomitant]
     Active Substance: BENFOTIAMINE
     Indication: DIABETIC NEUROPATHY
     Dosage: 160 MG, 1X/DAY
  13. BENADRYL [Concomitant]
     Active Substance: DIPHENHYDRAMINE HYDROCHLORIDE
     Indication: SLEEP DISORDER
  14. LYRICA [Suspect]
     Active Substance: PREGABALIN
     Indication: SPINAL OSTEOARTHRITIS
     Dosage: 150 MG, 4X/DAY
  15. LYRICA [Suspect]
     Active Substance: PREGABALIN
     Indication: RADICULOPATHY
  16. PENNSAID [Concomitant]
     Active Substance: DICLOFENAC SODIUM
     Indication: DIABETIC NEUROPATHY
     Dosage: A FEW DROPS TO RIGHT TOE, 1X/DAY
  17. IBUPROFEN. [Concomitant]
     Active Substance: IBUPROFEN
     Indication: PAIN
     Dosage: 800 MG, 1X/DAY
     Route: 048
     Dates: start: 2009
  18. AMITRIPTYLINE [Concomitant]
     Active Substance: AMITRIPTYLINE
     Dosage: 50 MG, 1X/DAY(AT BEDTIME)
  19. THEOPHYLLINE [Concomitant]
     Active Substance: THEOPHYLLINE ANHYDROUS
     Indication: HYPERSENSITIVITY
     Dosage: 100 MG, 1X/DAY (AT BEDTIME)
  20. VENTOLIN HFA [Concomitant]
     Active Substance: ALBUTEROL SULFATE
     Indication: HYPERSENSITIVITY
     Dosage: UNK UNK, 1X/DAY(1 PUFF IN MORNING)
  21. LYRICA [Suspect]
     Active Substance: PREGABALIN
     Indication: DIABETIC NEUROPATHY
     Dosage: 150 MG, 3X/DAY
     Dates: start: 2013
  22. ATENOLOL. [Concomitant]
     Active Substance: ATENOLOL
     Dosage: 25 MG, 1X/DAY(AT BEDTIME )
  23. TRAMADOL HYDROCHLORIDE. [Concomitant]
     Active Substance: TRAMADOL HYDROCHLORIDE
     Indication: BREAKTHROUGH PAIN
     Dosage: 50 MG, 2-3 TIMES A DAY
     Route: 048
     Dates: start: 2013
  24. INVOKANA [Concomitant]
     Active Substance: CANAGLIFLOZIN
     Indication: TYPE 2 DIABETES MELLITUS
     Dosage: 300 MG, 1X/DAY
  25. HYDROCODONE [Concomitant]
     Active Substance: HYDROCODONE
     Indication: BREAKTHROUGH PAIN
     Dosage: 1 DF, 4X/DAY
     Route: 048
     Dates: start: 2013
  26. GABAPENTIN. [Concomitant]
     Active Substance: GABAPENTIN
     Indication: DIABETIC NEUROPATHY
     Dosage: 600 MG, 3-4 TIMES A DAY
     Route: 048
     Dates: start: 2011
  27. CINNAMON. [Concomitant]
     Active Substance: CINNAMON
     Dosage: 500 MG, 1X/DAY (IN MORNING COFFEE)
  28. BENADRYL [Concomitant]
     Active Substance: DIPHENHYDRAMINE HYDROCHLORIDE
     Indication: DRUG HYPERSENSITIVITY
     Dosage: UNK, 1X/DAY (AT BEDTIME)

REACTIONS (3)
  - Intentional product misuse [Not Recovered/Not Resolved]
  - Dizziness [Recovered/Resolved]
  - Drug ineffective [Not Recovered/Not Resolved]

NARRATIVE: CASE EVENT DATE: 20141201
